FAERS Safety Report 12138562 (Version 1)
Quarter: 2016Q1

REPORT INFORMATION
  Report Type: Spontaneous
  Country: FR (occurrence: FR)
  Receive Date: 20160302
  Receipt Date: 20160302
  Transmission Date: 20160526
  Serious: Yes (Hospitalization)
  Sender: FDA-Public Use
  Company Number: FR-PFIZER INC-2016113415

PATIENT
  Age: 60 Year
  Sex: Male

DRUGS (19)
  1. COLCHICINE. [Suspect]
     Active Substance: COLCHICINE
     Indication: PAIN
     Dosage: 2 MG, 1X/DAY
     Route: 048
     Dates: start: 20150304, end: 20150309
  2. LASILIX /00032601/ [Suspect]
     Active Substance: FUROSEMIDE
     Dosage: 125 MG, 1X/DAY
     Route: 048
     Dates: end: 20150309
  3. LERCAN [Suspect]
     Active Substance: LERCANIDIPINE
     Dosage: 10 MG, 1X/DAY
     Route: 048
     Dates: end: 20150309
  4. CORTANCYL [Concomitant]
     Active Substance: PREDNISONE
     Dosage: UNK
  5. HYPERIUM [Suspect]
     Active Substance: RILMENIDINE PHOSPHATE
     Dosage: 1 MG, 2X/DAY
     Route: 048
     Dates: end: 20150309
  6. INEXIUM /01479302/ [Suspect]
     Active Substance: ESOMEPRAZOLE MAGNESIUM
     Dosage: 40 MG, 1X/DAY
     Route: 048
     Dates: end: 20150309
  7. KARDEGIC [Concomitant]
     Active Substance: ASPIRIN LYSINE
     Dosage: UNK
  8. TAHOR [Suspect]
     Active Substance: ATORVASTATIN CALCIUM
     Dosage: 40 MG, 1X/DAY
     Route: 048
     Dates: end: 20150309
  9. ALPRESS [Suspect]
     Active Substance: PRAZOSIN
     Dosage: UNK
     Dates: start: 20150312
  10. BISOCE [Concomitant]
     Active Substance: BISOPROLOL
     Dosage: UNK
  11. DOLIPRANE [Concomitant]
     Active Substance: ACETAMINOPHEN
     Dosage: UNK
  12. HYPERIUM [Suspect]
     Active Substance: RILMENIDINE PHOSPHATE
     Dosage: UNK
     Dates: start: 20150312
  13. LERCAN [Suspect]
     Active Substance: LERCANIDIPINE
     Dosage: UNK
     Dates: start: 20150313
  14. APROVEL [Suspect]
     Active Substance: IRBESARTAN
     Dosage: 150 MG, 1X/DAY
     Route: 048
     Dates: end: 20150309
  15. ARANESP [Concomitant]
     Active Substance: DARBEPOETIN ALFA
     Dosage: UNK
  16. NEORAL [Concomitant]
     Active Substance: CYCLOSPORINE
     Dosage: UNK
  17. ALPRESS [Suspect]
     Active Substance: PRAZOSIN
     Dosage: 2.5 MG, 2X/DAY
     Route: 048
     Dates: end: 20150309
  18. CELLCEPT [Concomitant]
     Active Substance: MYCOPHENOLATE MOFETIL\MYCOPHENOLATE MOFETIL HYDROCHLORIDE
     Dosage: UNK
  19. ALLOPURINOL. [Concomitant]
     Active Substance: ALLOPURINOL
     Dosage: UNK

REACTIONS (7)
  - Hyperkalaemia [Recovered/Resolved]
  - Thrombocytopenia [Recovered/Resolved]
  - General physical health deterioration [Recovered/Resolved]
  - Arthralgia [Recovering/Resolving]
  - Diarrhoea [Recovered/Resolved]
  - Rhabdomyolysis [Recovered/Resolved]
  - Burning sensation [Recovered/Resolved]

NARRATIVE: CASE EVENT DATE: 20150305
